FAERS Safety Report 21075527 (Version 1)
Quarter: 2022Q3

REPORT INFORMATION
  Report Type: Spontaneous
  Country: US (occurrence: None)
  Receive Date: 20220712
  Receipt Date: 20220712
  Transmission Date: 20221026
  Serious: Yes (Death)
  Sender: FDA-Public Use
  Company Number: None

PATIENT
  Age: 79 Year
  Sex: Male

DRUGS (1)
  1. WARFARIN [Suspect]
     Active Substance: WARFARIN

REACTIONS (8)
  - Headache [None]
  - Nausea [None]
  - Vomiting [None]
  - Hemiparesis [None]
  - Loss of consciousness [None]
  - Hypertension [None]
  - International normalised ratio increased [None]
  - Cerebral haemorrhage [None]

NARRATIVE: CASE EVENT DATE: 20211020
